FAERS Safety Report 23963505 (Version 1)
Quarter: 2024Q2

REPORT INFORMATION
  Report Type: Spontaneous
  Country: US (occurrence: US)
  Receive Date: 20240611
  Receipt Date: 20240611
  Transmission Date: 20240716
  Serious: Yes (Death, Other)
  Sender: FDA-Public Use
  Company Number: US-SANDOZ-SDZ2024US056624

PATIENT
  Age: 63 Year
  Sex: Male

DRUGS (1)
  1. AMOXICILLIN\CLAVULANATE POTASSIUM [Suspect]
     Active Substance: AMOXICILLIN\CLAVULANATE POTASSIUM
     Indication: Sinusitis
     Dosage: 875 MG, BID
     Route: 048
     Dates: start: 20240413, end: 20240413

REACTIONS (4)
  - Anaphylactic reaction [Fatal]
  - Loss of consciousness [Fatal]
  - Brain hypoxia [Fatal]
  - Apnoea [Fatal]

NARRATIVE: CASE EVENT DATE: 20240413
